FAERS Safety Report 6170930-1 (Version None)
Quarter: 2009Q2

REPORT INFORMATION
  Report Type: 
  Country: None (occurrence: None)
  Receive Date: 20090428
  Receipt Date: 20090428
  Transmission Date: 20091009
  Serious: No
  Sender: FDA-Public Use
  Company Number: None

PATIENT
  Age: 5 Year
  Sex: Male
  Weight: 26.3086 kg

DRUGS (1)
  1. RITALIN LA [Suspect]
     Indication: ATTENTION DEFICIT/HYPERACTIVITY DISORDER
     Dosage: ADDERALL 30MG DAILY PO
     Route: 048
     Dates: start: 20090420, end: 20090424

REACTIONS (10)
  - ASTHENIA [None]
  - DRUG DISPENSING ERROR [None]
  - HEART RATE INCREASED [None]
  - HOT FLUSH [None]
  - HYPERHIDROSIS [None]
  - MEDICATION ERROR [None]
  - MOOD ALTERED [None]
  - NAUSEA [None]
  - PRODUCT LABEL ON WRONG PRODUCT [None]
  - WRONG DRUG ADMINISTERED [None]
